FAERS Safety Report 9116853 (Version 1)
Quarter: 2013Q1

REPORT INFORMATION
  Report Type: Spontaneous
  Country: FR (occurrence: FR)
  Receive Date: 20130225
  Receipt Date: 20130225
  Transmission Date: 20140127
  Serious: Yes (Congenital Anomaly, Other)
  Sender: FDA-Public Use
  Company Number: PHHY2013FR017775

PATIENT
  Sex: Female
  Weight: 2.4 kg

DRUGS (3)
  1. LEPONEX [Suspect]
     Dosage: 3 DF, UNK
     Route: 064
  2. SERESTA [Concomitant]
     Dosage: 10 MG, TID
     Route: 064
  3. TERCIAN [Concomitant]
     Dosage: 50 MG, QD
     Route: 064

REACTIONS (4)
  - Scaphocephaly [Recovered/Resolved with Sequelae]
  - Amniocentesis abnormal [Unknown]
  - Low birth weight baby [Unknown]
  - Foetal exposure during pregnancy [Unknown]
